FAERS Safety Report 7965927-2 (Version None)
Quarter: 2011Q4

REPORT INFORMATION
  Report Type: 
  Country: None (occurrence: None)
  Receive Date: 20111208
  Receipt Date: 20111201
  Transmission Date: 20120403
  Serious: Yes (Other)
  Sender: FDA-Public Use
  Company Number: SK-GLAXOSMITHKLINE-B0767619A

PATIENT
  Age: 31 Year
  Sex: Male

DRUGS (3)
  1. TROBALT [Suspect]
     Indication: EPILEPSY
     Dosage: 200MG THREE TIMES PER DAY
     Dates: start: 20111013, end: 20111130
  2. VALPROATE SODIUM [Concomitant]
     Indication: EPILEPSY
  3. CARBAMAZEPINE [Concomitant]

REACTIONS (6)
  - NAUSEA [None]
  - GRAND MAL CONVULSION [None]
  - DISORIENTATION [None]
  - EPILEPSY [None]
  - PETIT MAL EPILEPSY [None]
  - TREMOR [None]
